FAERS Safety Report 5881248-6 (Version None)
Quarter: 2008Q3

REPORT INFORMATION
  Report Type: 
  Country: None (occurrence: None)
  Receive Date: 20080912
  Receipt Date: 20080624
  Transmission Date: 20090109
  Serious: No
  Sender: FDA-Public Use
  Company Number: US-ABBOTT-08P-163-0459190-00

PATIENT
  Sex: Female
  Weight: 63.56 kg

DRUGS (4)
  1. HUMIRA [Suspect]
     Indication: CROHN'S DISEASE
     Route: 058
     Dates: start: 20080514, end: 20080514
  2. HUMIRA [Suspect]
     Route: 058
     Dates: start: 20080430, end: 20080430
  3. HUMIRA [Suspect]
     Route: 058
     Dates: start: 20080528, end: 20080611
  4. HUMIRA [Suspect]
     Route: 058
     Dates: start: 20080611

REACTIONS (2)
  - DIARRHOEA HAEMORRHAGIC [None]
  - MUSCLE SPASMS [None]
